FAERS Safety Report 24995657 (Version 1)
Quarter: 2025Q1

REPORT INFORMATION
  Report Type: Spontaneous
  Country: GB (occurrence: GB)
  Receive Date: 20250221
  Receipt Date: 20250221
  Transmission Date: 20250408
  Serious: Yes (Other)
  Sender: SANOFI AVENTIS
  Company Number: None

PATIENT
  Age: 77 Year
  Sex: Male
  Weight: 84 kg

DRUGS (19)
  1. TAMSULOSIN HYDROCHLORIDE [Suspect]
     Active Substance: TAMSULOSIN HYDROCHLORIDE
     Indication: Bladder disorder
     Dosage: UNK UNK, QD; (ONCE AT NIGHT)
     Route: 065
     Dates: start: 20250117, end: 20250121
  2. AMLODIPINE [Concomitant]
     Active Substance: AMLODIPINE BESYLATE
     Indication: Adverse drug reaction
     Dosage: 5MG, MORNING
     Route: 065
  3. SIMVASTATIN [Concomitant]
     Active Substance: SIMVASTATIN
     Indication: Prostate cancer
     Dosage: 20 MG, QD MORNING
     Route: 065
  4. SIMVASTATIN [Concomitant]
     Active Substance: SIMVASTATIN
     Indication: Aortic dissection
  5. ALLOPURINOL [Concomitant]
     Active Substance: ALLOPURINOL
     Indication: Prostate cancer
     Dosage: 100 MG, QD, MORNING
     Route: 065
  6. ALLOPURINOL [Concomitant]
     Active Substance: ALLOPURINOL
     Indication: Aortic dissection
  7. ATENOLOL [Concomitant]
     Active Substance: ATENOLOL
     Indication: Aortic dissection
     Dosage: 25 MG, QD, EVENING
     Route: 065
  8. ATENOLOL [Concomitant]
     Active Substance: ATENOLOL
     Indication: Prostate cancer
  9. CANDESARTAN [Concomitant]
     Active Substance: CANDESARTAN
     Indication: Prostate cancer
     Dosage: 16 MG, BID, MORNING AND EVENING
     Route: 065
  10. CANDESARTAN [Concomitant]
     Active Substance: CANDESARTAN
     Indication: Aortic dissection
  11. MOXONIDINE [Concomitant]
     Active Substance: MOXONIDINE
     Indication: Prostate cancer
     Dosage: 200 UG, QD, EVENING
     Route: 065
  12. MOXONIDINE [Concomitant]
     Active Substance: MOXONIDINE
     Indication: Aortic dissection
  13. CLOPIDOGREL [Concomitant]
     Active Substance: CLOPIDOGREL BISULFATE
     Indication: Prostate cancer
     Dosage: 75MG, EVENING
     Route: 065
  14. CLOPIDOGREL [Concomitant]
     Active Substance: CLOPIDOGREL BISULFATE
     Indication: Aortic dissection
  15. CALCIUM CARBONATE\CHOLECALCIFEROL [Concomitant]
     Active Substance: CALCIUM CARBONATE\CHOLECALCIFEROL
     Indication: Product used for unknown indication
     Dosage: UNK UNK, BID, MORNING AND EVENING
     Route: 065
  16. CYPROTERONE [Concomitant]
     Active Substance: CYPROTERONE
     Indication: Aortic dissection
     Dosage: 50 MG, QD, CYPROTERONE
     Route: 065
  17. CYPROTERONE [Concomitant]
     Active Substance: CYPROTERONE
     Indication: Prostate cancer
  18. CETIRIZINE [Concomitant]
     Active Substance: CETIRIZINE HYDROCHLORIDE
     Indication: Aortic dissection
     Dosage: 10 MG, QD, MORNING
     Route: 065
  19. CETIRIZINE [Concomitant]
     Active Substance: CETIRIZINE HYDROCHLORIDE
     Indication: Prostate cancer

REACTIONS (1)
  - Deafness [Recovered/Resolved]

NARRATIVE: CASE EVENT DATE: 20250117
